FAERS Safety Report 5014672-4 (Version None)
Quarter: 2006Q2

REPORT INFORMATION
  Report Type: 
  Country: None (occurrence: None)
  Receive Date: 20060531
  Receipt Date: 20060222
  Transmission Date: 20061013
  Serious: Yes (Death, Life-Threatening)
  Sender: FDA-Public Use
  Company Number: PHBS2006JP02868

PATIENT
  Age: 45 Year
  Sex: Male
  Weight: 73 kg

DRUGS (13)
  1. SANDIMMUNE [Suspect]
     Indication: GRAFT VERSUS HOST DISEASE
     Dosage: 120 MG/D
     Route: 042
     Dates: start: 20041207, end: 20041229
  2. SANDIMMUNE [Suspect]
     Dosage: 175 MG/D
     Route: 042
     Dates: start: 20041027, end: 20041124
  3. CIPROXAN [Suspect]
     Dosage: 300 MG/D
     Route: 042
     Dates: start: 20041122, end: 20041205
  4. BAKTAR [Suspect]
     Dosage: 480 MG/D
     Route: 048
     Dates: start: 20041120, end: 20041206
  5. ALLOPURINOL [Suspect]
     Dosage: 100 MG/D
     Route: 048
     Dates: start: 20041108, end: 20041206
  6. CARDENALIN [Suspect]
     Dosage: 2 MG/D
     Route: 048
     Dates: start: 20041108, end: 20041206
  7. ADALAT [Suspect]
     Dosage: 20 MG/D
     Route: 048
     Dates: start: 20041108, end: 20041206
  8. RYTHMODAN [Suspect]
     Dosage: 100 MG/D
     Route: 048
     Dates: start: 20041108, end: 20041206
  9. OXYCONTIN [Suspect]
     Dosage: 10 MG/D
     Route: 048
     Dates: start: 20041202, end: 20041207
  10. GASTER [Suspect]
     Dosage: 10 MG/D
     Route: 048
     Dates: start: 20041129, end: 20041206
  11. NEORAL [Suspect]
     Indication: CORD BLOOD TRANSPLANT THERAPY
     Dosage: 150 MG/D
     Route: 048
     Dates: start: 20041125, end: 20041206
  12. FLUDARABINE PHOSPHATE [Concomitant]
     Indication: CORD BLOOD TRANSPLANT THERAPY
     Dosage: 180 MG/M2
     Route: 065
  13. BUSULFAN [Concomitant]
     Indication: CORD BLOOD TRANSPLANT THERAPY
     Dosage: 8 MG/KG/D
     Route: 065

REACTIONS (6)
  - CYTOMEGALOVIRUS INFECTION [None]
  - DRUG ERUPTION [None]
  - ERYTHEMA [None]
  - SECONDARY IMMUNODEFICIENCY [None]
  - SEPTIC SHOCK [None]
  - TOXIC EPIDERMAL NECROLYSIS [None]
